FAERS Safety Report 8906243 (Version 1)
Quarter: 2012Q4

REPORT INFORMATION
  Report Type: Spontaneous
  Country: US (occurrence: None)
  Receive Date: 20121107
  Receipt Date: 20121107
  Transmission Date: 20130627
  Serious: Yes (Death)
  Sender: FDA-Public Use
  Company Number: UTC-024963

PATIENT
  Age: 55 Year
  Sex: Male
  Weight: 114 kg

DRUGS (2)
  1. TYVASO [Suspect]
     Indication: CHRONIC PULMONARY HEART DISEASE
     Route: 055
     Dates: start: 20120207
  2. REVATIO {SILDENAFIL CITRATE}(UNKNOWN) [Concomitant]

REACTIONS (1)
  - Death [None]
